FAERS Safety Report 11202489 (Version 20)
Quarter: 2021Q3

REPORT INFORMATION
  Report Type: Spontaneous
  Country: US (occurrence: US)
  Receive Date: 20150619
  Receipt Date: 20210701
  Transmission Date: 20211014
  Serious: Yes (Hospitalization, Other)
  Sender: FDA-Public Use
  Company Number: US-PFIZER INC-2015202473

PATIENT
  Age: 76 Year
  Sex: Female
  Weight: 95 kg

DRUGS (20)
  1. XARELTO [Concomitant]
     Active Substance: RIVAROXABAN
     Indication: ANTICOAGULANT THERAPY
     Dosage: 20 MG, 1X/DAY (PM)
     Dates: start: 2015
  2. LYRICA [Suspect]
     Active Substance: PREGABALIN
     Indication: PAIN IN EXTREMITY
     Dosage: 150 MG, 2X/DAY (TWICE PER DAY)
  3. LEVOTHYROXINE. [Concomitant]
     Active Substance: LEVOTHYROXINE
     Dosage: 0.5 MG, DAILY
     Route: 048
  4. CALCIUM [Concomitant]
     Active Substance: CALCIUM
     Dosage: 500 MG (1 DAY AM +2 )
     Dates: start: 2010
  5. LYRICA [Suspect]
     Active Substance: PREGABALIN
     Indication: PAIN
     Dosage: 150 MG, 2X/DAY
     Route: 048
     Dates: start: 2015
  6. LYRICA [Suspect]
     Active Substance: PREGABALIN
     Indication: ARTHRALGIA
     Dosage: 150 MG, 2X/DAY
     Route: 048
  7. LEVOTHYROXINE. [Concomitant]
     Active Substance: LEVOTHYROXINE
     Indication: PHARYNGEAL OPERATION
     Dosage: 0.05 MG, 1X/DAY (AM)
     Route: 048
     Dates: start: 2000
  8. LEVOTHYROXINE. [Concomitant]
     Active Substance: LEVOTHYROXINE
     Dosage: 0.5 MG, 1X/DAY(TAKE ONE IN THE EVENING BY MOUTH)
     Route: 048
  9. ELIQUIS [Concomitant]
     Active Substance: APIXABAN
     Indication: THROMBOSIS
     Dosage: 2.5 MG, 2X/DAY (TAKE ONE TABLET EVERY 12 HOURS BY MOUTH)
     Route: 048
     Dates: start: 2014
  10. CLONIDINE. [Concomitant]
     Active Substance: CLONIDINE
     Indication: BLOOD PRESSURE ABNORMAL
     Dosage: 0.1 MG, 2X/DAY (1 DAY AM, PM)
     Route: 048
     Dates: start: 2010
  11. PRAVASTATIN. [Concomitant]
     Active Substance: PRAVASTATIN
     Dosage: 8 MG, 1X/DAY
     Route: 048
  12. LYRICA [Suspect]
     Active Substance: PREGABALIN
     Indication: BLOOD GLUCOSE ABNORMAL
     Dosage: 150 MG, 2X/DAY (DAY AND NIGHT]) [2 DAY AM PM]
     Route: 048
     Dates: start: 2017
  13. GLIMEPIRIDE. [Concomitant]
     Active Substance: GLIMEPIRIDE
     Indication: BLOOD GLUCOSE ABNORMAL
     Dosage: 1 MG, 1X/DAY (AM)
     Dates: start: 2010
  14. PRAVASTATIN. [Concomitant]
     Active Substance: PRAVASTATIN
     Indication: BLOOD CHOLESTEROL ABNORMAL
     Dosage: 80 MG, 1X/DAY (PM)
     Dates: start: 2010
  15. FISH OIL [Concomitant]
     Active Substance: FISH OIL
     Dosage: 1000 MG, 1X/DAY (AM)
     Dates: start: 2015
  16. LYRICA [Suspect]
     Active Substance: PREGABALIN
     Indication: MYOPATHY
     Dosage: 50 MG, 2X/DAY
     Route: 048
  17. SIMVASTATIN. [Concomitant]
     Active Substance: SIMVASTATIN
     Dosage: UNK
  18. LYRICA [Suspect]
     Active Substance: PREGABALIN
     Indication: NEURALGIA
     Dosage: 150 UNK
  19. BUMETANIDE. [Concomitant]
     Active Substance: BUMETANIDE
     Indication: DIURETIC THERAPY
     Dosage: 2 MG, DAILY
     Route: 048
  20. D?PLUS [Concomitant]
     Indication: VITAMIN D DECREASED
     Dosage: 125 MG, DAILY
     Route: 048

REACTIONS (33)
  - Upper limb fracture [Not Recovered/Not Resolved]
  - Clostridium difficile colitis [Recovering/Resolving]
  - Macular degeneration [Not Recovered/Not Resolved]
  - Cough [Recovered/Resolved]
  - Memory impairment [Not Recovered/Not Resolved]
  - Dysphonia [Unknown]
  - Pain [Not Recovered/Not Resolved]
  - Abdominal pain upper [Unknown]
  - Arthritis [Not Recovered/Not Resolved]
  - Tremor [Not Recovered/Not Resolved]
  - Fall [Not Recovered/Not Resolved]
  - Thrombosis [Unknown]
  - Intervertebral disc injury [Not Recovered/Not Resolved]
  - Hallucination, visual [Recovered/Resolved]
  - Dysgraphia [Unknown]
  - Product prescribing issue [Unknown]
  - Joint dislocation [Not Recovered/Not Resolved]
  - Pain in extremity [Not Recovered/Not Resolved]
  - Reading disorder [Unknown]
  - Expired product administered [Unknown]
  - Illness [Not Recovered/Not Resolved]
  - Body height decreased [Unknown]
  - Nausea [Not Recovered/Not Resolved]
  - Bone density abnormal [Unknown]
  - Injury [Not Recovered/Not Resolved]
  - Haematoma [Recovering/Resolving]
  - Vomiting [Recovering/Resolving]
  - Nephrolithiasis [Recovered/Resolved with Sequelae]
  - Decreased appetite [Not Recovered/Not Resolved]
  - Lower limb fracture [Not Recovered/Not Resolved]
  - Oropharyngeal pain [Recovered/Resolved]
  - Spinal disorder [Unknown]
  - Visual impairment [Not Recovered/Not Resolved]

NARRATIVE: CASE EVENT DATE: 2015
